FAERS Safety Report 6902227-3 (Version None)
Quarter: 2010Q3

REPORT INFORMATION
  Report Type: 
  Country: None (occurrence: None)
  Receive Date: 20100803
  Receipt Date: 20080501
  Transmission Date: 20110219
  Serious: No
  Sender: FDA-Public Use
  Company Number: US-PFIZER INC-2008038997

PATIENT
  Sex: Female
  Weight: 111.6 kg

DRUGS (7)
  1. LYRICA [Suspect]
     Indication: PAIN IN EXTREMITY
     Dates: start: 20080401
  2. STARLIX [Concomitant]
  3. BYETTA [Concomitant]
  4. CYMBALTA [Concomitant]
  5. BENAZEPRIL [Concomitant]
  6. COREG [Concomitant]
  7. PREVACID [Concomitant]

REACTIONS (6)
  - DRY MOUTH [None]
  - HYPOAESTHESIA FACIAL [None]
  - INSOMNIA [None]
  - LIMB DISCOMFORT [None]
  - LIP DISORDER [None]
  - SENSATION OF HEAVINESS [None]
